FAERS Safety Report 7340191-6 (Version None)
Quarter: 2011Q1

REPORT INFORMATION
  Report Type: 
  Country: None (occurrence: None)
  Receive Date: 20110228
  Receipt Date: 20110214
  Transmission Date: 20110831
  Serious: Yes (Death)
  Sender: FDA-Public Use
  Company Number: AXC-2011-000092

PATIENT
  Age: 79 Year
  Sex: Female

DRUGS (2)
  1. CORTICOSTEROIDS [Concomitant]
  2. URSODEOXYCHOLIC ACID (URSODEOXYCHOLIC ACID) UNKNOWN [Suspect]
     Indication: CHOLANGITIS SCLEROSING

REACTIONS (3)
  - CHOLANGITIS SCLEROSING [None]
  - DISEASE PROGRESSION [None]
  - GASTRIC CANCER [None]
